FAERS Safety Report 8390759-3 (Version None)
Quarter: 2012Q2

REPORT INFORMATION
  Report Type: 
  Country: None (occurrence: None)
  Receive Date: 20120529
  Receipt Date: 20120516
  Transmission Date: 20120825
  Serious: Yes (Other)
  Sender: FDA-Public Use
  Company Number: CA-JNJFOC-20110604379

PATIENT
  Sex: Male
  Weight: 73 kg

DRUGS (15)
  1. PRAMIPEXOLE DIHYDROCHLORIDE [Concomitant]
  2. ADVAIR DISKUS 100/50 [Concomitant]
     Dosage: 2 PUFFS TWICE DAILY
  3. TRIAZOLAM [Concomitant]
  4. VITAMIN B-12 [Concomitant]
     Dosage: 1200
  5. LOPERAMIDE [Concomitant]
     Dosage: 2 TO 2.5 MG DAILY
  6. PREDNISONE [Concomitant]
  7. TYLENOL 3 WITH CODEINE [Concomitant]
     Route: 048
  8. REMICADE [Suspect]
     Indication: CROHN'S DISEASE
     Route: 042
     Dates: start: 20120323, end: 20120323
  9. LORAZEPAM [Concomitant]
  10. OXAZEPAM [Concomitant]
  11. REMICADE [Suspect]
     Route: 042
     Dates: start: 20091201, end: 20110802
  12. RANITIDINE [Concomitant]
  13. AZATHIOPRINE [Concomitant]
  14. VISINE EYE DROPS [Concomitant]
  15. HYDRA-ZIDE [Concomitant]

REACTIONS (5)
  - GASTRIC INFECTION [None]
  - MOTION SICKNESS [None]
  - WEIGHT DECREASED [None]
  - PNEUMONIA [None]
  - GASTRIC CANCER [None]
